FAERS Safety Report 20477185 (Version 1)
Quarter: 2022Q1

REPORT INFORMATION
  Report Type: Spontaneous
  Country: US (occurrence: US)
  Receive Date: 20220215
  Receipt Date: 20220215
  Transmission Date: 20220423
  Serious: No
  Sender: FDA-Public Use
  Company Number: US-AMGEN-USASP2022024796

PATIENT
  Sex: Female

DRUGS (2)
  1. ENBREL [Suspect]
     Active Substance: ETANERCEPT
     Indication: Spinal osteoarthritis
     Dosage: 50 MILLIGRAM, QWK
     Route: 058
     Dates: start: 20210114
  2. PIROXICAM [Concomitant]
     Active Substance: PIROXICAM
     Dosage: 20 MILLIGRAM

REACTIONS (1)
  - Product dose omission issue [Unknown]
